FAERS Safety Report 8184644-X (Version None)
Quarter: 2012Q1

REPORT INFORMATION
  Report Type: 
  Country: None (occurrence: None)
  Receive Date: 20120305
  Receipt Date: 20120228
  Transmission Date: 20120608
  Serious: Yes (Hospitalization)
  Sender: FDA-Public Use
  Company Number: US-FRI-1000028731

PATIENT
  Age: 15 Year
  Sex: Female

DRUGS (3)
  1. LEXAPRO [Suspect]
     Indication: ANXIETY
     Dosage: 5 MG
     Route: 048
     Dates: start: 20110701, end: 20120202
  2. LEXAPRO [Suspect]
     Dosage: 10 MG
     Route: 048
     Dates: start: 20120203, end: 20120214
  3. LEXAPRO [Suspect]
     Dosage: 5 MG
     Dates: start: 20120215

REACTIONS (6)
  - FATIGUE [None]
  - SUICIDE ATTEMPT [None]
  - DEPRESSION [None]
  - SUICIDAL IDEATION [None]
  - INTENTIONAL SELF-INJURY [None]
  - OFF LABEL USE [None]
